FAERS Safety Report 6775843-X (Version None)
Quarter: 2010Q2

REPORT INFORMATION
  Report Type: 
  Country: None (occurrence: None)
  Receive Date: 20100615
  Receipt Date: 20100602
  Transmission Date: 20101027
  Serious: Yes (Other)
  Sender: FDA-Public Use
  Company Number: 1-22858550

PATIENT
  Sex: Male

DRUGS (9)
  1. BACTRIM [Suspect]
     Dates: end: 20100401
  2. REVILMD (LENAIDOMIDE) UNK STRENGTH [Suspect]
     Indication: MULTIPLE MYELOMA
     Dosage: 25 MG, QD X 21 DAYS (OFF 7) ORAL
     Route: 048
     Dates: start: 20100307
  3. FLAGYL (METRONIDAZOLE), UNK STRENGTH [Suspect]
     Indication: DIVERTICULITIS
  4. DEXAMETHASONE ACETATE [Concomitant]
  5. ACYCLOVIR [Concomitant]
  6. HYDROXYZINE [Concomitant]
  7. CRESTOR [Concomitant]
  8. ZANTAC [Concomitant]
  9. SINGULAIR [Concomitant]

REACTIONS (2)
  - DIVERTICULITIS [None]
  - RASH [None]
